FAERS Safety Report 16667659 (Version 1)
Quarter: 2019Q3

REPORT INFORMATION
  Report Type: Spontaneous
  Country: US (occurrence: US)
  Receive Date: 20190805
  Receipt Date: 20190805
  Transmission Date: 20191004
  Serious: Yes (Hospitalization, Other)
  Sender: FDA-Public Use
  Company Number: US-JNJFOC-20190732908

PATIENT
  Sex: Male

DRUGS (6)
  1. ABILIFY [Suspect]
     Active Substance: ARIPIPRAZOLE
     Indication: SCHIZOAFFECTIVE DISORDER
     Route: 048
     Dates: start: 20180416
  2. RISPERDAL [Suspect]
     Active Substance: RISPERIDONE
     Indication: PRODUCT USED FOR UNKNOWN INDICATION
     Dosage: ONGOING
     Route: 048
  3. ABILIFY [Suspect]
     Active Substance: ARIPIPRAZOLE
     Indication: BLOOD PROLACTIN INCREASED
  4. ABILIFY [Suspect]
     Active Substance: ARIPIPRAZOLE
     Indication: BIPOLAR I DISORDER
     Route: 048
  5. TRIHEXYPHENIDYL [Concomitant]
     Active Substance: TRIHEXYPHENIDYL
  6. LITHIUM. [Concomitant]
     Active Substance: LITHIUM

REACTIONS (18)
  - Chromaturia [Recovered/Resolved]
  - Gender dysphoria [Not Recovered/Not Resolved]
  - Cardiac hypertrophy [Unknown]
  - Menstrual disorder [Unknown]
  - Dysuria [Unknown]
  - Galactorrhoea [Unknown]
  - Memory impairment [Unknown]
  - Sexual dysfunction [Unknown]
  - Psychotic disorder [Unknown]
  - Post-traumatic stress disorder [Unknown]
  - Hot flush [Not Recovered/Not Resolved]
  - Sleep apnoea syndrome [Unknown]
  - Angina pectoris [Unknown]
  - Night sweats [Unknown]
  - Feeling abnormal [Unknown]
  - Condition aggravated [Not Recovered/Not Resolved]
  - Erectile dysfunction [Unknown]
  - Blood prolactin increased [Recovering/Resolving]

NARRATIVE: CASE EVENT DATE: 2018
